FAERS Safety Report 9525245 (Version 1)
Quarter: 2013Q1

REPORT INFORMATION
  Report Type: Spontaneous
  Country: US (occurrence: None)
  Receive Date: 20130313
  Receipt Date: 20130313
  Transmission Date: 20140127
  Serious: No
  Sender: FDA-Public Use
  Company Number: 1000028728

PATIENT
  Age: 57 Year
  Sex: Female

DRUGS (8)
  1. SAVELLA (MILNACIPRAN HYDROCHLORIDE) (12.5 MILLIGRAM, TABLETS) [Suspect]
     Indication: FIBROMYALGIA
     Dosage: 12.5 MG (12.5 MG, 2 IN 1 D)
  2. SAVELLA (MILNACIPRAN HYDROCHLORIDE) (TABLETS) [Suspect]
     Indication: FIBROMYALGIA
     Dosage: 100 MG BID (1OO MG, 2 IN 1 D)
  3. LEVOTHYROXINE (LEVOTHYROXINE SODIUM) (LEVOTHYROXINE SODIUM) [Concomitant]
  4. PRILOSEC (OMEPRAZOLE) (OMEPRAZOLE) [Concomitant]
  5. VITAMIN D (VITAMIN D) (VITAMIN D) [Concomitant]
  6. ZYRTEC (CETIRZINE HYDROCHLORIDE) (CETIRZINE HYDROCHLORIDE) [Concomitant]
  7. ATENOLOL (ATENOLOL) (ATENOLOL) [Concomitant]
  8. SIMVASTATIN (SIMVASTATIN) (SIMVASTATIN) [Concomitant]

REACTIONS (3)
  - Eye swelling [None]
  - Eye pruritus [None]
  - Ocular hyperaemia [None]
